FAERS Safety Report 20926137 (Version 1)
Quarter: 2022Q2

REPORT INFORMATION
  Report Type: Spontaneous
  Country: US (occurrence: US)
  Receive Date: 20220607
  Receipt Date: 20220607
  Transmission Date: 20220720
  Serious: No
  Sender: FDA-Public Use
  Company Number: US-PERRIGO-21US008713

PATIENT
  Age: 74 Year
  Sex: Male
  Weight: 104.31 kg

DRUGS (6)
  1. MINOXIDIL [Suspect]
     Active Substance: MINOXIDIL
     Indication: Alopecia
     Dosage: HALF CAPFUL, BID
     Route: 061
     Dates: start: 202008, end: 202101
  2. MINOXIDIL [Suspect]
     Active Substance: MINOXIDIL
     Dosage: HALF CAPFUL, BID
     Route: 061
     Dates: start: 202101, end: 202102
  3. MINOXIDIL [Suspect]
     Active Substance: MINOXIDIL
     Dosage: HALF CAPFUL, BID
     Route: 061
     Dates: start: 20210601, end: 20210603
  4. MINOXIDIL [Suspect]
     Active Substance: MINOXIDIL
     Dosage: HALF CAPFUL, QD
     Route: 061
     Dates: start: 20210604, end: 20210607
  5. LISINOPRIL [Concomitant]
     Active Substance: LISINOPRIL
     Indication: Hypertension
     Dosage: UNK
     Route: 065
  6. ALEVE [Concomitant]
     Active Substance: NAPROXEN SODIUM
     Indication: Pain
     Dosage: UNK
     Route: 065

REACTIONS (2)
  - Application site rash [Recovering/Resolving]
  - Inappropriate schedule of product administration [Recovered/Resolved]

NARRATIVE: CASE EVENT DATE: 20210101
